FAERS Safety Report 6377368-2 (Version None)
Quarter: 2009Q3

REPORT INFORMATION
  Report Type: 
  Country: None (occurrence: None)
  Receive Date: 20090923
  Receipt Date: 20090923
  Transmission Date: 20100115
  Serious: No
  Sender: FDA-Public Use
  Company Number: None

PATIENT
  Age: 46 Year
  Sex: Female
  Weight: 67.5 kg

DRUGS (6)
  1. WARFARIN [Suspect]
     Indication: THROMBOSIS PROPHYLAXIS
     Dosage: 10 MG PO DAILY
     Route: 048
  2. PREDNISONE [Concomitant]
  3. METOLAZONE [Concomitant]
  4. SILDENAFIL CITRATE [Concomitant]
  5. FUROSEMIDE [Concomitant]
  6. BOSENTAN [Concomitant]

REACTIONS (3)
  - HAEMOPTYSIS [None]
  - INTERNATIONAL NORMALISED RATIO INCREASED [None]
  - UPPER RESPIRATORY TRACT INFECTION [None]
